FAERS Safety Report 7967951-2 (Version None)
Quarter: 2011Q4

REPORT INFORMATION
  Report Type: 
  Country: None (occurrence: None)
  Receive Date: 20111207
  Receipt Date: 20111122
  Transmission Date: 20120403
  Serious: Yes (Hospitalization)
  Sender: FDA-Public Use
  Company Number: 2011AP002653

PATIENT
  Age: 32 Year
  Sex: Female

DRUGS (6)
  1. IBUPROFEN [Concomitant]
  2. VIT D (ERGOCALCIFEROL) [Concomitant]
  3. LEVOTHYROXINE SODIUM [Concomitant]
  4. SERTRALINE HYDROCHLORIDE [Suspect]
     Dosage: 200 MG;QD
     Dates: start: 20091201
  5. SERTRALINE HYDROCHLORIDE [Suspect]
     Dosage: 200 MG;QD
     Dates: start: 20110701
  6. CALCIUM CARBONATE [Concomitant]

REACTIONS (3)
  - SUBDURAL HAEMATOMA [None]
  - DRUG INTERACTION [None]
  - DRUG INEFFECTIVE [None]
